FAERS Safety Report 7572843-7 (Version None)
Quarter: 2011Q2

REPORT INFORMATION
  Report Type: 
  Country: None (occurrence: None)
  Receive Date: 20110525
  Receipt Date: 20110315
  Transmission Date: 20111010
  Serious: Yes (Hospitalization, Other)
  Sender: FDA-Public Use
  Company Number: 324591

PATIENT
  Age: 45 Year
  Sex: Male
  Weight: 112 kg

DRUGS (3)
  1. LISINOPRIL HCTZ (HYDROCHLOROTHIAZIDE, LISINOPRIL) [Concomitant]
  2. VICTOZA [Suspect]
     Indication: TYPE 2 DIABETES MELLITUS
     Dosage: SUBCUTANEOUS
     Route: 058
  3. DOXYCYCLINE [Suspect]
     Indication: TOOTH INFECTION

REACTIONS (2)
  - TOOTH INFECTION [None]
  - PANCREATITIS [None]
